FAERS Safety Report 13401606 (Version 1)
Quarter: 2017Q2

REPORT INFORMATION
  Report Type: Spontaneous
  Country: GB (occurrence: GB)
  Receive Date: 20170404
  Receipt Date: 20170404
  Transmission Date: 20170830
  Serious: Yes (Other)
  Sender: FDA-Public Use
  Company Number: GB-PFIZER INC-2017143585

PATIENT
  Age: 42 Year
  Sex: Male

DRUGS (1)
  1. GENOTROPIN GOQUICK [Suspect]
     Active Substance: SOMATROPIN
     Dosage: 0.2 MG, UNK
     Dates: start: 20170217

REACTIONS (5)
  - Confusional state [Unknown]
  - Fall [Unknown]
  - Wrong technique in product usage process [Unknown]
  - Intracranial pressure increased [Unknown]
  - Mental impairment [Unknown]

NARRATIVE: CASE EVENT DATE: 20170217
